FAERS Safety Report 9985617 (Version 1)
Quarter: 2014Q1

REPORT INFORMATION
  Report Type: Report from Study
  Country: FR (occurrence: FR)
  Receive Date: 20140307
  Receipt Date: 20140307
  Transmission Date: 20141002
  Serious: Yes (Other)
  Sender: FDA-Public Use
  Company Number: FR-VERTEX PHARMACEUTICALS INC-2014-001090

PATIENT
  Age: 49 Year
  Sex: Male
  Weight: 89 kg

DRUGS (7)
  1. VX-950 (TELAPREVIR) [Suspect]
     Indication: HEPATITIS C
     Dosage: 750 UNK, TID
     Route: 048
     Dates: start: 20110513, end: 20110802
  2. RIBAVIRIN [Suspect]
     Indication: HEPATITIS C
     Dosage: 1200 MG, QD
     Route: 065
     Dates: start: 20110513, end: 20120112
  3. PEGASYS [Suspect]
     Indication: HEPATITIS C
     Dosage: DOSAGE FORM: UNKNOWN
     Route: 065
     Dates: start: 20110513, end: 20120106
  4. DEXPANTHENOL [Concomitant]
     Indication: SKIN FISSURES
     Dates: start: 20110708
  5. ACUPAN [Concomitant]
     Indication: MUSCULOSKELETAL PAIN
     Dosage: DOSAGE FORM: UNKNOWN
     Route: 065
     Dates: start: 20120110
  6. DOLIPRANE [Concomitant]
     Indication: MUSCULOSKELETAL PAIN
     Dosage: 1000 MG, TID
     Route: 048
     Dates: start: 20120110
  7. ASPEGIC [Concomitant]
     Indication: MUSCULOSKELETAL PAIN
     Dosage: DOSAGE FORM: UNKNOWN
     Route: 065
     Dates: start: 20120110

REACTIONS (2)
  - Alanine aminotransferase increased [Unknown]
  - Gamma-glutamyltransferase increased [Unknown]
